FAERS Safety Report 17434113 (Version 7)
Quarter: 2020Q3

REPORT INFORMATION
  Report Type: Report from Study
  Country: US (occurrence: US)
  Receive Date: 20200219
  Receipt Date: 20200926
  Transmission Date: 20201102
  Serious: Yes (Disabling)
  Sender: FDA-Public Use
  Company Number: NVSC2020US044701

PATIENT
  Sex: Male

DRUGS (1)
  1. COSENTYX [Suspect]
     Active Substance: SECUKINUMAB
     Indication: PSORIASIS
     Dosage: 300 MG
     Route: 065

REACTIONS (7)
  - Vomiting [Unknown]
  - Gastrooesophageal reflux disease [Unknown]
  - Influenza [Unknown]
  - Dysstasia [Unknown]
  - Nasopharyngitis [Unknown]
  - Psoriasis [Unknown]
  - Alopecia [Unknown]
